FAERS Safety Report 6535763-2 (Version None)
Quarter: 2010Q1

REPORT INFORMATION
  Report Type: 
  Country: None (occurrence: None)
  Receive Date: 20100113
  Receipt Date: 20100104
  Transmission Date: 20100710
  Serious: Yes (Hospitalization)
  Sender: FDA-Public Use
  Company Number: FR-ASTRAZENECA-2010SE01034

PATIENT
  Age: 11610 Day
  Sex: Female

DRUGS (8)
  1. NEXIUM [Suspect]
     Indication: PROPHYLAXIS
     Route: 048
     Dates: start: 20090927, end: 20091016
  2. CEFOTAXIME PANPHARMA [Suspect]
     Indication: MENINGITIS PNEUMOCOCCAL
     Route: 042
     Dates: start: 20090927, end: 20091016
  3. DALACINE [Concomitant]
     Indication: MENINGITIS PNEUMOCOCCAL
     Route: 042
     Dates: start: 20091009, end: 20091017
  4. TRANXENE [Concomitant]
     Dates: start: 20091006
  5. DEXAMETHASONE [Concomitant]
     Dates: start: 20090927
  6. LOVENOX [Concomitant]
     Dates: start: 20090927
  7. HYPNOVEL [Concomitant]
     Dates: start: 20090927
  8. MORPHINE [Concomitant]
     Dates: start: 20090927

REACTIONS (1)
  - DRUG RASH WITH EOSINOPHILIA AND SYSTEMIC SYMPTOMS [None]
